FAERS Safety Report 13042428 (Version 3)
Quarter: 2017Q1

REPORT INFORMATION
  Report Type: Spontaneous
  Country: US (occurrence: US)
  Receive Date: 20161219
  Receipt Date: 20170301
  Transmission Date: 20170428
  Serious: Yes (Other)
  Sender: FDA-Public Use
  Company Number: PHEH2016US032606

PATIENT
  Sex: Male

DRUGS (3)
  1. AFINITOR [Suspect]
     Active Substance: EVEROLIMUS
     Indication: RENAL CANCER
     Dosage: 2.5 MG, QD (ONCE DAILY)
     Route: 048
     Dates: end: 201702
  2. LENVATINIB [Suspect]
     Active Substance: LENVATINIB
     Indication: RENAL CANCER
     Dosage: 18 MG, QD (ONCE DAILY)
     Route: 048
     Dates: start: 20161109
  3. LENVATINIB [Suspect]
     Active Substance: LENVATINIB
     Dosage: 10 MG, QD (ONCE DAILY)
     Route: 048
     Dates: start: 20161119, end: 201702

REACTIONS (6)
  - Malignant neoplasm progression [Unknown]
  - Arthralgia [Unknown]
  - Neuropathy peripheral [Not Recovered/Not Resolved]
  - Fistula [Unknown]
  - Renal cancer [Unknown]
  - Drug intolerance [Unknown]
